FAERS Safety Report 11659914 (Version 1)
Quarter: 2015Q4

REPORT INFORMATION
  Report Type: Spontaneous
  Country: US (occurrence: None)
  Receive Date: 20151023
  Receipt Date: 20151023
  Transmission Date: 20160304
  Serious: No
  Sender: FDA-Public Use
  Company Number: None

PATIENT
  Age: 66 Year
  Sex: Female
  Weight: 46.72 kg

DRUGS (2)
  1. ONE A DAY MULTIPLE VITAMINS WITH MINERALS [Concomitant]
  2. BREO ELLIPTA [Suspect]
     Active Substance: FLUTICASONE FUROATE\VILANTEROL TRIFENATATE
     Indication: DRUG HYPERSENSITIVITY
     Dosage: 1 PUFF ONCE DAILY INHALATION
     Route: 055
     Dates: start: 20150828, end: 20151001

REACTIONS (9)
  - Pain in jaw [None]
  - Arthralgia [None]
  - Tinnitus [None]
  - Swelling face [None]
  - Pain in extremity [None]
  - Peripheral swelling [None]
  - Arthropathy [None]
  - Chest pain [None]
  - Spinal pain [None]

NARRATIVE: CASE EVENT DATE: 20150915
